FAERS Safety Report 5874052-6 (Version None)
Quarter: 2008Q3

REPORT INFORMATION
  Report Type: 
  Country: None (occurrence: None)
  Receive Date: 20080908
  Receipt Date: 20080902
  Transmission Date: 20090109
  Serious: No
  Sender: FDA-Public Use
  Company Number: FR-AVENTIS-200812334FR

PATIENT
  Age: 35 Year
  Sex: Female
  Weight: 56 kg

DRUGS (2)
  1. ARAVA [Suspect]
     Route: 048
     Dates: start: 20080101, end: 20080510
  2. ANALGESICS [Concomitant]

REACTIONS (2)
  - ABORTION INDUCED [None]
  - DRUG EXPOSURE DURING PREGNANCY [None]
